FAERS Safety Report 12704100 (Version 3)
Quarter: 2016Q4

REPORT INFORMATION
  Report Type: Report from Study
  Country: BR (occurrence: BR)
  Receive Date: 20160831
  Receipt Date: 20161129
  Transmission Date: 20170207
  Serious: Yes (Hospitalization, Other)
  Sender: FDA-Public Use
  Company Number: PHHY2016BR118268

PATIENT
  Sex: Male
  Weight: 135 kg

DRUGS (2)
  1. LOSARTAN. [Concomitant]
     Active Substance: LOSARTAN
     Indication: HYPERTENSION
     Dosage: UNK
     Route: 048
  2. SANDOSTATIN LAR DEPOT [Suspect]
     Active Substance: OCTREOTIDE ACETATE
     Indication: ACROMEGALY
     Dosage: 30 MG, QMO
     Route: 030
     Dates: start: 1986

REACTIONS (7)
  - Hemiplegia [Recovering/Resolving]
  - Hypertension [Recovering/Resolving]
  - Lymphoma [Recovered/Resolved]
  - Urinary tract infection [Recovered/Resolved]
  - Pyrexia [Unknown]
  - White blood cell count decreased [Recovered/Resolved]
  - Haemorrhagic stroke [Recovering/Resolving]

NARRATIVE: CASE EVENT DATE: 2014
